FAERS Safety Report 4907078-7 (Version None)
Quarter: 2006Q1

REPORT INFORMATION
  Report Type: 
  Country: None (occurrence: None)
  Receive Date: 20060207
  Receipt Date: 20060120
  Transmission Date: 20060701
  Serious: Yes (Other)
  Sender: FDA-Public Use
  Company Number: USA0511112439

PATIENT
  Age: 61 Year
  Sex: Male
  Weight: 70 kg

DRUGS (3)
  1. STRATTERA [Suspect]
     Indication: ATTENTION DEFICIT/HYPERACTIVITY DISORDER
     Dosage: 80 MG
     Dates: start: 20050301, end: 20051001
  2. FOLTX [Concomitant]
  3. TEMAZEPAM [Concomitant]

REACTIONS (2)
  - EXTRASYSTOLES [None]
  - FEELING ABNORMAL [None]
